FAERS Safety Report 6137757-8 (Version None)
Quarter: 2009Q1

REPORT INFORMATION
  Report Type: 
  Country: None (occurrence: None)
  Receive Date: 20090327
  Receipt Date: 20090312
  Transmission Date: 20090719
  Serious: Yes (Hospitalization)
  Sender: FDA-Public Use
  Company Number: 2009001920

PATIENT
  Sex: Female

DRUGS (10)
  1. FENTORA [Suspect]
     Indication: ARTHRITIS
     Dosage: 9600 MCG (800 MCG, 1 IN 2 HR), BU
     Route: 002
     Dates: start: 20060101
  2. FENTORA [Suspect]
     Indication: MULTIPLE SCLEROSIS
     Dosage: 9600 MCG (800 MCG, 1 IN 2 HR), BU
     Route: 002
     Dates: start: 20060101
  3. FENTORA [Suspect]
     Indication: SYSTEMIC LUPUS ERYTHEMATOSUS
     Dosage: 9600 MCG (800 MCG, 1 IN 2 HR), BU
     Route: 002
     Dates: start: 20060101
  4. FOLIC ACID [Concomitant]
  5. FISH OIL (FISH OIL) [Concomitant]
  6. PREDNISONE (PREDNISONE)(TABLETS) [Concomitant]
  7. VICODIN (PARACETAMOL, HYDROCODONE BITARTRATE)(TABLETS) [Concomitant]
  8. FENTANYL [Concomitant]
  9. GEMFIBROZIL (GEMFIBROZIL)(TABLETS) [Concomitant]
  10. THYROID MEDICATION (THYROID THERAPY)(TABLETS) [Concomitant]

REACTIONS (6)
  - ANXIETY [None]
  - DRUG DEPENDENCE [None]
  - DRUG PRESCRIBING ERROR [None]
  - HYPERHIDROSIS [None]
  - MUSCLE TWITCHING [None]
  - TREMOR [None]
